FAERS Safety Report 19094533 (Version 1)
Quarter: 2021Q2

REPORT INFORMATION
  Report Type: Spontaneous
  Country: US (occurrence: US)
  Receive Date: 20210405
  Receipt Date: 20210405
  Transmission Date: 20210717
  Serious: No
  Sender: FDA-Public Use
  Company Number: US-JAZZ-2020-US-017409

PATIENT
  Sex: Female
  Weight: 95.24 kg

DRUGS (17)
  1. PREVIDENT 5000 BOOSTER [Concomitant]
     Active Substance: SODIUM FLUORIDE
  2. ANORO ELLIPTA [Concomitant]
     Active Substance: UMECLIDINIUM BROMIDE\VILANTEROL TRIFENATATE
  3. CHLORTHALIDONE. [Concomitant]
     Active Substance: CHLORTHALIDONE
  4. GLUCOSAMINE CHONDROITIN SULFATE [Concomitant]
  5. METFORMIN HCL [Concomitant]
     Active Substance: METFORMIN HYDROCHLORIDE
  6. LOSARTAN POTASSIUM. [Concomitant]
     Active Substance: LOSARTAN POTASSIUM
  7. SIMVASTATIN. [Concomitant]
     Active Substance: SIMVASTATIN
  8. MAALOX ADVANCED [CALCIUM CARBONATE;SIMETICONE] [Concomitant]
  9. MULTIVITALITY 50 PLUS [Concomitant]
  10. VESICARE [Concomitant]
     Active Substance: SOLIFENACIN SUCCINATE
  11. GABAPENTIN. [Concomitant]
     Active Substance: GABAPENTIN
  12. SUNOSI [Suspect]
     Active Substance: SOLRIAMFETOL
     Indication: NARCOLEPSY
     Dosage: 75 MILLIGRAM, QD
  13. NUVIGIL [Concomitant]
     Active Substance: ARMODAFINIL
     Indication: PRODUCT USED FOR UNKNOWN INDICATION
  14. WAKIX [Concomitant]
     Active Substance: PITOLISANT HYDROCHLORIDE
  15. PROAIR HFA [Concomitant]
     Active Substance: ALBUTEROL SULFATE
  16. ASPIRIN EC [Concomitant]
     Active Substance: ASPIRIN
  17. ALEVE [Concomitant]
     Active Substance: NAPROXEN SODIUM

REACTIONS (1)
  - Feeling jittery [Unknown]
